FAERS Safety Report 7864415-1 (Version None)
Quarter: 2011Q4

REPORT INFORMATION
  Report Type: 
  Country: None (occurrence: None)
  Receive Date: 20111025
  Receipt Date: 20111013
  Transmission Date: 20120403
  Serious: Yes (Other)
  Sender: FDA-Public Use
  Company Number: 2011SP048443

PATIENT
  Sex: Female

DRUGS (1)
  1. PEGATRON (PEGYLATED INTERFERON ALF-2B W/RIBAVIRIN) [Suspect]
     Indication: HEPATITIS C

REACTIONS (2)
  - HYPOAESTHESIA ORAL [None]
  - ASTHENIA [None]
